FAERS Safety Report 8449780-9 (Version None)
Quarter: 2012Q2

REPORT INFORMATION
  Report Type: 
  Country: None (occurrence: None)
  Receive Date: 20120620
  Receipt Date: 20120611
  Transmission Date: 20120825
  Serious: Yes (Hospitalization)
  Sender: FDA-Public Use
  Company Number: US-BAYER-2011-023510

PATIENT
  Age: 32 Year
  Sex: Female
  Weight: 99.773 kg

DRUGS (5)
  1. ALBUTEROL [Concomitant]
  2. ACIPHEX [Concomitant]
  3. YASMIN [Suspect]
     Dosage: UNK
     Dates: start: 20010101, end: 20081201
  4. NORVASC [Concomitant]
     Dosage: 5 MG, UNK
  5. IBUPROFEN [Concomitant]

REACTIONS (12)
  - DYSPEPSIA [None]
  - CONSTIPATION [None]
  - SCAR [None]
  - ABDOMINAL DISTENSION [None]
  - DIARRHOEA [None]
  - PAIN [None]
  - GALLBLADDER DISORDER [None]
  - FLATULENCE [None]
  - DEPRESSION [None]
  - CHOLECYSTITIS CHRONIC [None]
  - INJURY [None]
  - ANXIETY [None]
